FAERS Safety Report 6266323-9 (Version None)
Quarter: 2009Q3

REPORT INFORMATION
  Report Type: 
  Country: None (occurrence: None)
  Receive Date: 20090713
  Receipt Date: 20090708
  Transmission Date: 20100115
  Serious: Yes (Death)
  Sender: FDA-Public Use
  Company Number: PHHY2009CL28039

PATIENT
  Age: 92 Year
  Sex: Female

DRUGS (6)
  1. TAREG D [Suspect]
     Dosage: 0.5 DF (160/12.5 MG)/ DAY
     Route: 048
     Dates: end: 20090101
  2. TAREG D [Suspect]
     Dosage: 0.5 DF (160/12.5 MG)/ DAY
     Route: 048
     Dates: end: 20090301
  3. FUROSEMIDE [Concomitant]
  4. INSULIN [Concomitant]
  5. ASPIRIN [Concomitant]
  6. EUTIROX [Concomitant]

REACTIONS (2)
  - PNEUMONIA [None]
  - RENAL FAILURE [None]
